FAERS Safety Report 15797107 (Version 1)
Quarter: 2019Q1

REPORT INFORMATION
  Report Type: Spontaneous
  Country: US (occurrence: US)
  Receive Date: 20190107
  Receipt Date: 20190107
  Transmission Date: 20190417
  Serious: No
  Sender: FDA-Public Use
  Company Number: None

PATIENT
  Age: 31 Year
  Sex: Female
  Weight: 74.25 kg

DRUGS (1)
  1. AIMOVIG [Suspect]
     Active Substance: ERENUMAB-AOOE
     Indication: MIGRAINE
     Dosage: INJECT INTO LEG SUBQ?
     Route: 058
     Dates: start: 20180615

REACTIONS (2)
  - Back pain [None]
  - Menstruation irregular [None]

NARRATIVE: CASE EVENT DATE: 20181115
